FAERS Safety Report 21243326 (Version 3)
Quarter: 2023Q1

REPORT INFORMATION
  Report Type: Report from Study
  Country: PA (occurrence: PA)
  Receive Date: 20220823
  Receipt Date: 20230114
  Transmission Date: 20230417
  Serious: Yes (Other)
  Sender: FDA-Public Use
  Company Number: PA-NOVARTISPH-NVSC2022PA131678

PATIENT
  Age: 72 Year
  Sex: Female
  Weight: 45 kg

DRUGS (12)
  1. KISQALI [Suspect]
     Active Substance: RIBOCICLIB
     Indication: Breast cancer metastatic
     Dosage: 3 DOSAGE FORM (CYCLE 1:3 TABLETS OF 400MG DAILY)
     Route: 048
     Dates: start: 20220306, end: 20220328
  2. KISQALI [Suspect]
     Active Substance: RIBOCICLIB
     Dosage: 400 MG, QD
     Route: 048
     Dates: start: 202203
  3. KISQALI [Suspect]
     Active Substance: RIBOCICLIB
     Dosage: 3 DOSAGE FORM, QD (CYCLE 2:3 TABLETS OF 400MG DAILY)
     Route: 048
     Dates: start: 20220406, end: 20220427
  4. KISQALI [Suspect]
     Active Substance: RIBOCICLIB
     Dosage: 600 MG, QD
     Route: 048
     Dates: start: 20220505
  5. KISQALI [Suspect]
     Active Substance: RIBOCICLIB
     Dosage: 2 DOSAGE FORM, QD (CYCLE 3: 2 TABLETS OF 400MG DAILY ORALLY)
     Route: 048
     Dates: start: 20220605, end: 20220611
  6. ANASTROZOLE [Suspect]
     Active Substance: ANASTROZOLE
     Indication: Hormone therapy
     Dosage: 1 MG, QD (APPROXIMATELY TWO YEARS AGO)
     Route: 048
  7. ARIMIDEX [Concomitant]
     Active Substance: ANASTROZOLE
     Indication: Product used for unknown indication
     Dosage: UNK UNK, QD
     Route: 065
  8. VITAMIN A [Concomitant]
     Active Substance: VITAMIN A
     Indication: Product used for unknown indication
     Dosage: UNK
     Route: 048
  9. VITAMIN B1 [Concomitant]
     Active Substance: THIAMINE HYDROCHLORIDE
     Indication: Product used for unknown indication
     Dosage: UNK
     Route: 048
  10. VITAMIN B6 [Concomitant]
     Active Substance: PYRIDOXINE HYDROCHLORIDE
     Indication: Product used for unknown indication
     Dosage: UNK
     Route: 048
  11. VITAMIN B12 [Concomitant]
     Active Substance: CYANOCOBALAMIN
     Indication: Product used for unknown indication
     Dosage: UNK
     Route: 048
  12. VITAMIN D [Concomitant]
     Active Substance: VITAMIN D NOS
     Indication: Product used for unknown indication
     Dosage: UNK
     Route: 048

REACTIONS (16)
  - Metastases to lung [Unknown]
  - Decreased immune responsiveness [Not Recovered/Not Resolved]
  - Tachycardia [Recovered/Resolved]
  - Arthralgia [Recovered/Resolved]
  - Cough [Recovered/Resolved]
  - Asthenia [Recovered/Resolved]
  - Pruritus [Recovered/Resolved]
  - Platelet count decreased [Unknown]
  - Cough [Unknown]
  - Arthralgia [Not Recovered/Not Resolved]
  - Hepatic pain [Unknown]
  - Myalgia [Not Recovered/Not Resolved]
  - Pain in extremity [Unknown]
  - Insomnia [Unknown]
  - Tachycardia [Recovered/Resolved]
  - Vaginal pH decreased [Not Recovered/Not Resolved]

NARRATIVE: CASE EVENT DATE: 20220201
